FAERS Safety Report 23382898 (Version 1)
Quarter: 2024Q1

REPORT INFORMATION
  Report Type: Spontaneous
  Country: BE (occurrence: BE)
  Receive Date: 20240109
  Receipt Date: 20240109
  Transmission Date: 20240410
  Serious: Yes (Death, Life-Threatening, Hospitalization, Other)
  Sender: FDA-Public Use
  Company Number: BE-MYLANLABS-2024M1002122

PATIENT
  Age: 22 Year
  Sex: Male

DRUGS (8)
  1. FLUOROURACIL [Suspect]
     Active Substance: FLUOROURACIL
     Indication: Metastases to liver
     Dosage: INFUSION
     Route: 065
     Dates: start: 20220121
  2. FLUOROURACIL [Suspect]
     Active Substance: FLUOROURACIL
     Indication: Colorectal adenocarcinoma
  3. IRINOTECAN [Suspect]
     Active Substance: IRINOTECAN
     Indication: Colorectal adenocarcinoma
     Dosage: UNK
     Route: 065
     Dates: start: 2022
  4. IRINOTECAN [Suspect]
     Active Substance: IRINOTECAN
     Indication: Metastases to liver
  5. OXALIPLATIN [Suspect]
     Active Substance: OXALIPLATIN
     Indication: Colorectal adenocarcinoma
     Dosage: AS FOLFOX REGIMEN; FIRST LINE CHEMOTHERAPY; INFUSION
     Route: 065
     Dates: start: 20220121
  6. OXALIPLATIN [Suspect]
     Active Substance: OXALIPLATIN
     Indication: Metastases to liver
     Dosage: AS SECOND-LINE CHEMOTHERAPY
     Route: 065
     Dates: start: 2022
  7. GIMERACIL\OTERACIL\TEGAFUR [Suspect]
     Active Substance: GIMERACIL\OTERACIL POTASSIUM\TEGAFUR
     Indication: Colorectal adenocarcinoma
     Dosage: SECOND LINE OF CHEMOTHERAPY
     Route: 065
     Dates: start: 2022
  8. GIMERACIL\OTERACIL\TEGAFUR [Suspect]
     Active Substance: GIMERACIL\OTERACIL POTASSIUM\TEGAFUR
     Indication: Metastases to liver
     Dosage: THIRD LINE OF CHEMOTHERAPY WITH IRINOTECAN
     Route: 065
     Dates: start: 2022

REACTIONS (6)
  - Drug ineffective [Fatal]
  - Toxic cardiomyopathy [Recovering/Resolving]
  - Ventricular tachycardia [Recovering/Resolving]
  - Cardiogenic shock [Recovering/Resolving]
  - Cardiac arrest [Recovering/Resolving]
  - Bundle branch block left [Unknown]

NARRATIVE: CASE EVENT DATE: 20220101
